FAERS Safety Report 25989921 (Version 1)
Quarter: 2025Q4

REPORT INFORMATION
  Report Type: Spontaneous
  Country: US (occurrence: None)
  Receive Date: 20251031
  Receipt Date: 20251031
  Transmission Date: 20260118
  Serious: Yes (Hospitalization)
  Sender: FDA-CTU
  Company Number: None

PATIENT
  Age: 81 Year
  Sex: Female
  Weight: 59 kg

DRUGS (4)
  1. ABEMACICLIB [Suspect]
     Active Substance: ABEMACICLIB
     Indication: Breast cancer metastatic
     Dosage: FREQUENCY : TWICE A DAY;?
     Route: 048
     Dates: start: 20250916, end: 20251031
  2. CLOPIDOGREL [Concomitant]
     Active Substance: CLOPIDOGREL BISULFATE
  3. LETROZOLE [Concomitant]
     Active Substance: LETROZOLE
  4. DENOSUMAB [Concomitant]
     Active Substance: DENOSUMAB

REACTIONS (2)
  - Pulmonary embolism [None]
  - Product quality issue [None]

NARRATIVE: CASE EVENT DATE: 20251031
